FAERS Safety Report 11827242 (Version 2)
Quarter: 2016Q1

REPORT INFORMATION
  Report Type: Spontaneous
  Country: IT (occurrence: IT)
  Receive Date: 20151211
  Receipt Date: 20160203
  Transmission Date: 20160525
  Serious: Yes (Hospitalization)
  Sender: FDA-Public Use
  Company Number: IT-SA-2015SA205413

PATIENT
  Age: 56 Year
  Sex: Female
  Weight: 48 kg

DRUGS (3)
  1. FLUOROURACIL. [Concomitant]
     Active Substance: FLUOROURACIL
     Indication: RECTAL CANCER
     Dosage: SOLUTION FOR ?INTRAVENOUS INFUSION
     Route: 041
     Dates: start: 20151026, end: 20151028
  2. PANITUMUMAB [Concomitant]
     Active Substance: PANITUMUMAB
     Indication: RECTAL CANCER
     Dosage: SOLUTION FOR ?INTRAVENOUS INFUSION
     Route: 041
     Dates: start: 20151026, end: 20151026
  3. OXALIPLATIN. [Suspect]
     Active Substance: OXALIPLATIN
     Indication: RECTAL CANCER
     Dosage: SOLUTION FOR ?INTRAVENOUS USE
     Route: 042
     Dates: start: 20151026, end: 20151026

REACTIONS (1)
  - Gastrointestinal motility disorder [Recovered/Resolved]

NARRATIVE: CASE EVENT DATE: 20151031
